FAERS Safety Report 5122276-8 (Version None)
Quarter: 2006Q4

REPORT INFORMATION
  Report Type: 
  Country: None (occurrence: None)
  Receive Date: 20061006
  Receipt Date: 20060914
  Transmission Date: 20070319
  Serious: Yes (Other)
  Sender: FDA-Public Use
  Company Number: US-BRISTOL-MYERS SQUIBB COMPANY-13509591

PATIENT
  Age: 40 Year
  Sex: Female

DRUGS (3)
  1. AVAPRO [Suspect]
     Indication: HYPERTENSION
     Route: 048
     Dates: start: 20060531, end: 20060707
  2. LANTUS [Concomitant]
     Dosage: LANUTS/HUMALOG
     Route: 058
  3. CRESTOR [Concomitant]

REACTIONS (2)
  - ABSCESS DRAINAGE [None]
  - ANGIONEUROTIC OEDEMA [None]
